FAERS Safety Report 7062842-6 (Version None)
Quarter: 2010Q4

REPORT INFORMATION
  Report Type: 
  Country: None (occurrence: None)
  Receive Date: 20101026
  Receipt Date: 20100302
  Transmission Date: 20110411
  Serious: No
  Sender: FDA-Public Use
  Company Number: US-PFIZER INC-2010027333

PATIENT
  Sex: Female

DRUGS (5)
  1. LIPITOR [Suspect]
     Dosage: UNK
  2. CELEBREX [Suspect]
     Dosage: UNK
  3. BENICAR [Suspect]
  4. COUMADIN [Suspect]
  5. TOPROL-XL [Suspect]
     Dosage: UNK

REACTIONS (1)
  - DIARRHOEA [None]
